FAERS Safety Report 24902398 (Version 2)
Quarter: 2025Q1

REPORT INFORMATION
  Report Type: Spontaneous
  Country: FR (occurrence: FR)
  Receive Date: 20250130
  Receipt Date: 20250204
  Transmission Date: 20250408
  Serious: Yes (Other)
  Sender: EMD SERONO INC
  Company Number: None

PATIENT
  Age: 34 Year
  Sex: Female
  Weight: 88 kg

DRUGS (11)
  1. GONAL-F [Suspect]
     Active Substance: FOLLITROPIN
     Indication: Controlled ovarian stimulation
     Dosage: 150 UI, 1.5 ML (66 MICROGRAMS/1.5 ML)
     Dates: start: 20241011, end: 20241015
  2. GONAL-F [Suspect]
     Active Substance: FOLLITROPIN
     Dosage: 125 UI, 1.5 ML (66 MICROGRAMS/1.5 ML)
     Dates: start: 20241004, end: 20241010
  3. GONAL-F [Suspect]
     Active Substance: FOLLITROPIN
     Dosage: 125 UI, 1.5 ML (66 MICROGRAMS/1.5 ML)
     Dates: start: 20240714, end: 20240721
  4. GONAL-F [Suspect]
     Active Substance: FOLLITROPIN
     Dosage: 100 UI, 1.5 ML (66 MICROGRAMS/1.5 ML)
     Dates: start: 20240517, end: 20240521
  5. GONAL-F [Suspect]
     Active Substance: FOLLITROPIN
     Dosage: 75 UI, 1.5 ML (66 MICROGRAMS/1.5 ML)
     Dates: start: 20240510, end: 20240517
  6. GONAL-F [Suspect]
     Active Substance: FOLLITROPIN
     Dosage: 50 UI, 1.5 ML (66 MICROGRAMS/1.5 ML)
     Dates: start: 20240415, end: 20240422
  7. PROGESTERONE [Concomitant]
     Active Substance: PROGESTERONE
     Indication: Controlled ovarian stimulation
     Dosage: 1 EGG 200 MG EVERY EVENING
     Dates: start: 20241017, end: 20241027
  8. PROGESTERONE [Concomitant]
     Active Substance: PROGESTERONE
     Dosage: 1 EGG 200 MG EVERY EVENING
     Dates: start: 20240723, end: 20240802
  9. PROGESTERONE [Concomitant]
     Active Substance: PROGESTERONE
     Dosage: 1 EGG 200 MG EVERY EVENING
     Dates: start: 20240523, end: 20240602
  10. DUPHASTON [Concomitant]
     Active Substance: DYDROGESTERONE
     Indication: Controlled ovarian stimulation
     Dates: start: 20240424, end: 20240504
  11. CHORIOGONADOTROPIN ALFA [Concomitant]
     Active Substance: CHORIOGONADOTROPIN ALFA
     Indication: Ovulation induction
     Dates: start: 20240722, end: 20240722

REACTIONS (1)
  - Weight increased [Not Recovered/Not Resolved]

NARRATIVE: CASE EVENT DATE: 20240415
